FAERS Safety Report 23420356 (Version 1)
Quarter: 2024Q1

REPORT INFORMATION
  Report Type: Spontaneous
  Country: US (occurrence: US)
  Receive Date: 20240119
  Receipt Date: 20240119
  Transmission Date: 20240410
  Serious: Yes (Other)
  Sender: FDA-Public Use
  Company Number: US-BRISTOL-MYERS SQUIBB COMPANY-2024-009753

PATIENT
  Age: 74 Year
  Sex: Male

DRUGS (31)
  1. LENALIDOMIDE [Suspect]
     Active Substance: LENALIDOMIDE
     Indication: Plasma cell myeloma
     Dosage: QD ON DAYS 1-21 Q28 DAYS
     Route: 048
  2. AMLODIPINE [Concomitant]
     Active Substance: AMLODIPINE BESYLATE
  3. GABAPENTIN [Concomitant]
     Active Substance: GABAPENTIN
  4. DARZALEX [Concomitant]
     Active Substance: DARATUMUMAB
  5. VENLAFAXINE [Concomitant]
     Active Substance: VENLAFAXINE HYDROCHLORIDE
  6. LITHIUM [Concomitant]
     Active Substance: LITHIUM
  7. ASPIRIN [Concomitant]
     Active Substance: ASPIRIN
     Dosage: 325
  8. ALOGLIPTIN [Concomitant]
     Active Substance: ALOGLIPTIN
  9. LANTUS SOLOSTAR [Concomitant]
     Active Substance: INSULIN GLARGINE
  10. ONDANSETRON [Concomitant]
     Active Substance: ONDANSETRON
     Dosage: PRN
  11. DONEPEZIL [Concomitant]
     Active Substance: DONEPEZIL
  12. TUMS [Concomitant]
     Active Substance: CALCIUM CARBONATE
  13. OMEPRAZOLE [Concomitant]
     Active Substance: OMEPRAZOLE
  14. POLYETHYLENE GLYCOLS [Concomitant]
     Active Substance: POLYETHYLENE GLYCOLS
  15. CETIRIZINE [Concomitant]
     Active Substance: CETIRIZINE HYDROCHLORIDE
  16. LOSARTAN [Concomitant]
     Active Substance: LOSARTAN
  17. DOCUSATE SODIUM [Concomitant]
     Active Substance: DOCUSATE SODIUM
  18. VALACYCLOVIR [Concomitant]
     Active Substance: VALACYCLOVIR HYDROCHLORIDE
  19. FINASTERIDE [Concomitant]
     Active Substance: FINASTERIDE
  20. BACTRIM [Concomitant]
     Active Substance: SULFAMETHOXAZOLE\TRIMETHOPRIM
  21. VITAMIN B-COMPLEX [Concomitant]
     Active Substance: DEXPANTHENOL\NIACINAMIDE\PYRIDOXINE HYDROCHLORIDE\RIBOFLAVIN 5^-PHOSPHATE SODIUM\THIAMINE HYDROCHLOR
  22. VITAMINS NOS [Concomitant]
     Active Substance: VITAMINS
  23. VITAMIN C [Concomitant]
     Active Substance: ASCORBIC ACID
  24. METFORMIN [Concomitant]
     Active Substance: METFORMIN HYDROCHLORIDE
  25. DOXYCYCLINE HYCLATE [Concomitant]
     Active Substance: DOXYCYCLINE HYCLATE
  26. EMPAGLIFLOZIN [Concomitant]
     Active Substance: EMPAGLIFLOZIN
  27. HYDROXYZINE [Concomitant]
     Active Substance: HYDROXYZINE HYDROCHLORIDE
  28. DUPIXENT [Concomitant]
     Active Substance: DUPILUMAB
  29. BETAMETHASONE [Concomitant]
     Active Substance: BETAMETHASONE\BETAMETHASONE DIPROPIONATE
  30. PROCTOSOL [Concomitant]
  31. NITROGLYCERIN [Concomitant]
     Active Substance: NITROGLYCERIN
     Dosage: PRN

REACTIONS (1)
  - Pneumonia [Unknown]
